FAERS Safety Report 16072088 (Version 1)
Quarter: 2019Q1

REPORT INFORMATION
  Report Type: Spontaneous
  Country: US (occurrence: US)
  Receive Date: 20190213
  Receipt Date: 20190213
  Transmission Date: 20190418
  Serious: No
  Sender: FDA-Public Use
  Company Number: None

PATIENT
  Age: 64 Year
  Sex: Female

DRUGS (1)
  1. ORENCIA [Suspect]
     Active Substance: ABATACEPT
     Dates: start: 2011

REACTIONS (3)
  - Therapy cessation [None]
  - Product prescribing error [None]
  - Condition aggravated [None]

NARRATIVE: CASE EVENT DATE: 20190110
